FAERS Safety Report 9692631 (Version 1)
Quarter: 2013Q4

REPORT INFORMATION
  Report Type: Report from Study
  Country: VE (occurrence: VE)
  Receive Date: 20131118
  Receipt Date: 20131118
  Transmission Date: 20140711
  Serious: Yes (Other)
  Sender: FDA-Public Use
  Company Number: PHHY2013VE130963

PATIENT
  Age: 70 Year
  Sex: Female

DRUGS (2)
  1. ACLASTA [Suspect]
     Indication: OSTEOPOROSIS
     Dosage: 1 DF, ANNUALLY
     Route: 042
     Dates: start: 20110201
  2. ACLASTA [Suspect]
     Dosage: 1 DF, ANNUALLY
     Route: 042
     Dates: start: 201203

REACTIONS (1)
  - Cataract [Unknown]
